FAERS Safety Report 11122386 (Version 1)
Quarter: 2015Q2

REPORT INFORMATION
  Report Type: Spontaneous
  Country: US (occurrence: None)
  Receive Date: 20150518
  Receipt Date: 20150518
  Transmission Date: 20150821
  Serious: No
  Sender: FDA-Public Use
  Company Number: None

PATIENT
  Age: 68 Year
  Sex: Female

DRUGS (14)
  1. NPH INSULIN [Concomitant]
     Active Substance: INSULIN BEEF
  2. LISINOPRIL. [Concomitant]
     Active Substance: LISINOPRIL
  3. BACLOFEN. [Concomitant]
     Active Substance: BACLOFEN
  4. OXYBUTYNIN [Concomitant]
     Active Substance: OXYBUTYNIN
  5. BOTOX [Concomitant]
     Active Substance: ONABOTULINUMTOXINA
  6. NORCO [Concomitant]
     Active Substance: ACETAMINOPHEN\HYDROCODONE BITARTRATE
  7. HUMALOG [Concomitant]
     Active Substance: INSULIN LISPRO
  8. SIMVASTATIN. [Concomitant]
     Active Substance: SIMVASTATIN
  9. LODINE [Concomitant]
     Active Substance: ETODOLAC
  10. ASA [Concomitant]
     Active Substance: ASPIRIN
  11. HUMAPEN LUXURA HD [Concomitant]
  12. ARIMIDEX [Concomitant]
     Active Substance: ANASTROZOLE
  13. MODAFINIL. [Concomitant]
     Active Substance: MODAFINIL
  14. AMPYRA [Suspect]
     Active Substance: DALFAMPRIDINE
     Indication: MULTIPLE SCLEROSIS
     Route: 048
     Dates: start: 20100629

REACTIONS (1)
  - Laboratory test abnormal [None]

NARRATIVE: CASE EVENT DATE: 20150511
